FAERS Safety Report 17734778 (Version 1)
Quarter: 2020Q2

REPORT INFORMATION
  Report Type: Spontaneous
  Country: TW (occurrence: TW)
  Receive Date: 20200501
  Receipt Date: 20200501
  Transmission Date: 20200714
  Serious: Yes (Life-Threatening, Other)
  Sender: FDA-Public Use
  Company Number: TW-FRESENIUS KABI-FK202004344

PATIENT
  Age: 71 Year
  Sex: Male
  Weight: 59 kg

DRUGS (5)
  1. MORPHINE (MANUFACTURER UNKNOWN) [Suspect]
     Active Substance: MORPHINE
     Route: 042
  2. NALOXONE [Suspect]
     Active Substance: NALOXONE
     Indication: REVERSAL OF OPIATE ACTIVITY
     Route: 042
  3. NALOXONE [Suspect]
     Active Substance: NALOXONE
     Route: 042
  4. MORPHINE (MANUFACTURER UNKNOWN) [Suspect]
     Active Substance: MORPHINE
     Indication: POSTOPERATIVE ANALGESIA
     Route: 042
  5. NALOXONE [Suspect]
     Active Substance: NALOXONE
     Route: 042

REACTIONS (7)
  - Myasthenia gravis crisis [Recovered/Resolved]
  - Overdose [Recovered/Resolved]
  - Hypercapnia [Recovered/Resolved]
  - Stupor [Recovered/Resolved]
  - Stress [Recovered/Resolved]
  - Respiratory failure [Recovered/Resolved]
  - Hyperlactacidaemia [Recovered/Resolved]
